FAERS Safety Report 9172552 (Version 1)
Quarter: 2012Q4

REPORT INFORMATION
  Report Type: 
  Country: DE (occurrence: DE)
  Receive Date: 20120911
  Receipt Date: 20120911
  Transmission Date: 20130627
  Serious: Yes (Hospitalization)
  Sender: FDA-Public Use
  Company Number: DE-ROCHE-1122678

PATIENT
  Age: 84 Year
  Sex: Female

DRUGS (10)
  1. LUCENTIS [Suspect]
     Indication: MACULOPATHY
     Route: 050
     Dates: start: 20120614
  2. LUCENTIS [Suspect]
     Route: 050
     Dates: start: 20120806
  3. RAMIPRIL [Concomitant]
     Route: 065
  4. CARMEN [Concomitant]
     Route: 065
  5. METOPROLOL [Concomitant]
     Route: 065
  6. TORASEMIDE [Concomitant]
     Route: 065
  7. NOVAMINSULFON [Concomitant]
  8. OXYCODONE [Concomitant]
  9. LYRICA [Concomitant]
  10. ASS [Concomitant]

REACTIONS (1)
  - Spinal column stenosis [Not Recovered/Not Resolved]
